FAERS Safety Report 6346691-X (Version None)
Quarter: 2009Q3

REPORT INFORMATION
  Report Type: 
  Country: None (occurrence: None)
  Receive Date: 20090904
  Receipt Date: 20090826
  Transmission Date: 20100115
  Serious: Yes (Death, Hospitalization, Other)
  Sender: FDA-Public Use
  Company Number: 86283

PATIENT
  Age: 63 Year
  Sex: Male

DRUGS (4)
  1. DOXYCYCLINE HYCLATE [Suspect]
     Dosage: 100MG TWICE DAILY 5 - 10 DAYS
  2. LEVOFLOXACIN [Concomitant]
  3. DOXYCYCLINE [Concomitant]
  4. NAPROXEN [Concomitant]

REACTIONS (10)
  - ASTHENIA [None]
  - CHOLESTASIS [None]
  - COAGULOPATHY [None]
  - ENCEPHALOPATHY [None]
  - HEPATIC NECROSIS [None]
  - HEPATITIS ACUTE [None]
  - PERICARDIAL RUB [None]
  - PERITONEAL EFFUSION [None]
  - RENAL FAILURE [None]
  - WEIGHT DECREASED [None]
